FAERS Safety Report 20796474 (Version 1)
Quarter: 2022Q2

REPORT INFORMATION
  Report Type: Report from Study
  Country: MX (occurrence: MX)
  Receive Date: 20220506
  Receipt Date: 20220506
  Transmission Date: 20220721
  Serious: Yes (Hospitalization)
  Sender: FDA-Public Use
  Company Number: MX-NOVARTISPH-NVSC2022MX082678

PATIENT
  Age: 59 Year
  Sex: Female
  Weight: 62 kg

DRUGS (5)
  1. METFORMIN HYDROCHLORIDE\VILDAGLIPTIN [Suspect]
     Active Substance: METFORMIN HYDROCHLORIDE\VILDAGLIPTIN
     Indication: Diabetes mellitus
     Dosage: 1 DOSAGE FORM (50/1000 MG) (2019 OR 2020)
     Route: 048
     Dates: start: 2019
  2. INSULIN LISPRO [Concomitant]
     Active Substance: INSULIN LISPRO
     Indication: Blood glucose abnormal
     Dosage: 20 DOSAGE FORM (INJECTABLE SOLUTION) (15 IN THE MORNNG AND 5 IN THE NIGHT)
     Route: 030
  3. INSULIN LISPRO [Concomitant]
     Active Substance: INSULIN LISPRO
     Indication: Diabetes mellitus
     Dosage: 25 MG (15 UI IN MORNING, 5 UI IN NIGHT)
     Route: 059
     Dates: start: 2019
  4. GLYBURIDE [Concomitant]
     Active Substance: GLYBURIDE
     Indication: Product used for unknown indication
     Dosage: UNK
     Route: 065
  5. METFORMIN [Concomitant]
     Active Substance: METFORMIN HYDROCHLORIDE
     Indication: Product used for unknown indication
     Dosage: UNK
     Route: 065

REACTIONS (5)
  - Humerus fracture [Recovered/Resolved with Sequelae]
  - Fall [Recovered/Resolved]
  - Rotator cuff syndrome [Recovered/Resolved with Sequelae]
  - Fear [Unknown]
  - Pain [Unknown]

NARRATIVE: CASE EVENT DATE: 20210905
